FAERS Safety Report 4360442-X (Version None)
Quarter: 2004Q2

REPORT INFORMATION
  Report Type: 
  Country: None (occurrence: None)
  Receive Date: 20040514
  Receipt Date: 20040430
  Transmission Date: 20050107
  Serious: Yes (Life-Threatening, Hospitalization)
  Sender: FDA-Public Use
  Company Number: 2003-BP-10838NB

PATIENT
  Age: 84 Year
  Sex: Female

DRUGS (8)
  1. MOBIC [Suspect]
     Indication: BACK PAIN
     Dosage: 10 MG, PO
     Route: 048
     Dates: start: 20030602, end: 20031215
  2. GASTER D (TA) [Suspect]
     Indication: REFLUX OESOPHAGITIS
     Dosage: 40 MG, PO
     Route: 048
     Dates: start: 20021002, end: 20031215
  3. ASPIRIN [Concomitant]
  4. THYRADIN S (LEVOTHYROXINE SODIUIM) (TA) [Concomitant]
  5. PANTOSIN (PANTETHINE) (PL) [Concomitant]
  6. MAGNESIUM OXIDE (PL) [Concomitant]
  7. MIYA- BM (VER) [Concomitant]
     Indication: CONSTIPATION
     Route: 048
  8. POLARAMINE (DEXCHLORPHENIRAMINE MALEATE) (TA) [Concomitant]

REACTIONS (2)
  - EOSINOPHILIC PNEUMONIA [None]
  - RESPIRATORY DISTRESS [None]
